FAERS Safety Report 4820910-0 (Version None)
Quarter: 2005Q4

REPORT INFORMATION
  Report Type: 
  Country: None (occurrence: None)
  Receive Date: 20051104
  Receipt Date: 20031216
  Transmission Date: 20060501
  Serious: Yes (Hospitalization)
  Sender: FDA-Public Use
  Company Number: 200411519JP

PATIENT
  Age: 73 Year
  Sex: Female
  Weight: 51 kg

DRUGS (10)
  1. ARAVA [Suspect]
     Indication: RHEUMATOID ARTHRITIS
     Route: 048
     Dates: start: 20031111, end: 20031113
  2. ARAVA [Suspect]
     Route: 048
     Dates: start: 20031114, end: 20031212
  3. ARAVA [Suspect]
     Route: 048
     Dates: start: 20040109, end: 20040306
  4. WARFARIN SODIUM [Suspect]
     Indication: ARRHYTHMIA
     Route: 048
     Dates: start: 20011101
  5. VOLTAREN [Suspect]
     Indication: PAIN
     Route: 048
     Dates: start: 20011101, end: 20031210
  6. SUNRYTHM [Concomitant]
     Indication: ARRHYTHMIA
     Route: 048
     Dates: start: 20011101
  7. ALDACTONE [Concomitant]
     Indication: THROMBOSIS PROPHYLAXIS
     Route: 048
     Dates: start: 20011101
  8. NORVASC [Concomitant]
     Indication: HYPERTENSION
     Route: 048
     Dates: start: 20011101
  9. LIPOVAS [Concomitant]
     Indication: HYPERLIPIDAEMIA
     Route: 048
     Dates: start: 20011101
  10. SHIOSOL [Concomitant]
     Indication: RHEUMATOID ARTHRITIS
     Route: 030
     Dates: start: 20011101, end: 20031101

REACTIONS (3)
  - GASTRODUODENAL ULCER [None]
  - MELAENA [None]
  - RED BLOOD CELL COUNT DECREASED [None]
